FAERS Safety Report 4632910-4 (Version None)
Quarter: 2005Q2

REPORT INFORMATION
  Report Type: 
  Country: None (occurrence: None)
  Receive Date: 20050411
  Receipt Date: 20050411
  Transmission Date: 20051028
  Serious: No
  Sender: FDA-Public Use
  Company Number: None

PATIENT
  Sex: Female
  Weight: 90.7 kg

DRUGS (1)
  1. CYTARABINE [Suspect]
     Indication: ACUTE MYELOID LEUKAEMIA
     Dosage: 2800 MG IV OVER 1 HOUR Q 12 HOURS X 12 DOSES DAYS 1-6
     Route: 042
     Dates: start: 20050115

REACTIONS (3)
  - BLOOD CULTURE POSITIVE [None]
  - FEBRILE NEUTROPENIA [None]
  - STAPHYLOCOCCAL INFECTION [None]
